FAERS Safety Report 18410552 (Version 1)
Quarter: 2020Q4

REPORT INFORMATION
  Report Type: Spontaneous
  Country: US (occurrence: US)
  Receive Date: 20201021
  Receipt Date: 20201021
  Transmission Date: 20210114
  Serious: Yes (Other)
  Sender: FDA-Public Use
  Company Number: US-PFIZER INC-2020406740

PATIENT
  Age: 55 Year
  Sex: Male
  Weight: 83 kg

DRUGS (2)
  1. RUXIENCE [Suspect]
     Active Substance: RITUXIMAB-PVVR
     Dosage: UNK (1000MG PIGGYBACK)
     Route: 042
     Dates: start: 20201016
  2. RUXIENCE [Suspect]
     Active Substance: RITUXIMAB-PVVR
     Indication: NEPHROTIC SYNDROME
     Dosage: UNK (1000MG PIGGYBACK)
     Route: 042
     Dates: start: 20201016

REACTIONS (4)
  - Product use in unapproved indication [Unknown]
  - Dyspnoea [Unknown]
  - Cough [Unknown]
  - Off label use [Unknown]

NARRATIVE: CASE EVENT DATE: 20201016
